FAERS Safety Report 9070182 (Version 2)
Quarter: 2013Q1

REPORT INFORMATION
  Report Type: Spontaneous
  Country: US (occurrence: US)
  Receive Date: 20130129
  Receipt Date: 20130222
  Transmission Date: 20140127
  Serious: Yes (Hospitalization)
  Sender: FDA-Public Use
  Company Number: US-AMGEN-USASP2013004619

PATIENT
  Age: 61 Year
  Sex: Male
  Weight: 90.7 kg

DRUGS (5)
  1. ENBREL [Suspect]
     Indication: PSORIASIS
     Dosage: 50 MG, QWK
     Route: 058
     Dates: start: 20050925
  2. COREG [Concomitant]
     Indication: HYPERTENSION
     Dosage: UNK
  3. AMLODIPINE [Concomitant]
     Indication: HYPERTENSION
     Dosage: UNK
  4. LIPITOR [Concomitant]
     Indication: HYPERTENSION
     Dosage: UNK
  5. ALPRAZOLAM [Concomitant]
     Indication: ANXIETY
     Dosage: UNK

REACTIONS (3)
  - Cerebrovascular accident [Recovered/Resolved]
  - Hypertension [Not Recovered/Not Resolved]
  - Scab [Not Recovered/Not Resolved]
